FAERS Safety Report 8106543-1 (Version None)
Quarter: 2012Q1

REPORT INFORMATION
  Report Type: 
  Country: None (occurrence: None)
  Receive Date: 20120202
  Receipt Date: 20120131
  Transmission Date: 20120608
  Serious: Yes (Death, Hospitalization)
  Sender: FDA-Public Use
  Company Number: JP-BRISTOL-MYERS SQUIBB COMPANY-16362220

PATIENT
  Age: 72 Year
  Sex: Female
  Weight: 41 kg

DRUGS (18)
  1. PREDNISOLONE [Suspect]
     Indication: RHEUMATOID ARTHRITIS
     Dosage: 1 DF : 5-15MG,BEFORE ABATACEPT FIRST ADMINISTRATION-12SEP11,13SEP11-04OCT11;40MG
     Route: 048
     Dates: end: 20110912
  2. ORENCIA [Suspect]
     Indication: RHEUMATOID ARTHRITIS
     Dosage: 24MAY11,07JUN11
     Route: 042
     Dates: start: 20110510
  3. PLETAL [Concomitant]
     Indication: PROPHYLAXIS
  4. CYANOCOBALAMIN [Concomitant]
     Indication: STOMATITIS
  5. LANSOPRAZOLE [Concomitant]
     Indication: GASTRITIS
  6. GASTROM [Concomitant]
     Indication: GASTRITIS
  7. GASMOTIN [Concomitant]
     Indication: GASTRITIS
  8. ALPRAZOLAM [Concomitant]
     Indication: ANXIETY
  9. MAGMITT [Concomitant]
     Indication: CONSTIPATION
  10. BACTRIM [Suspect]
     Indication: PNEUMOCYSTIS JIROVECI PNEUMONIA
     Dates: start: 20110822
  11. CELECOXIB [Concomitant]
     Indication: RHEUMATOID ARTHRITIS
  12. METHOTREXATE [Suspect]
     Indication: RHEUMATOID ARTHRITIS
     Dates: start: 20040101, end: 20110920
  13. TACROLIMUS [Concomitant]
     Indication: RHEUMATOID ARTHRITIS
  14. ALENDRONATE SODIUM [Concomitant]
     Indication: OSTEOPOROSIS
  15. DEPAS [Concomitant]
     Indication: INSOMNIA
  16. PREDNISOLONE SODIUM SUCCINATE INJ [Suspect]
     Indication: RHEUMATOID ARTHRITIS
     Dates: start: 20110913, end: 20111004
  17. SULFAMETHOXAZOLE [Suspect]
     Indication: PNEUMOCYSTIS JIROVECI PNEUMONIA
     Dates: start: 20110905
  18. LIVALO [Concomitant]
     Indication: HYPERLIPIDAEMIA

REACTIONS (4)
  - THROMBOTIC THROMBOCYTOPENIC PURPURA [None]
  - PNEUMOCYSTIS JIROVECI PNEUMONIA [None]
  - CRYPTOCOCCOSIS [None]
  - DISSEMINATED INTRAVASCULAR COAGULATION [None]
